FAERS Safety Report 8491886-2 (Version None)
Quarter: 2012Q3

REPORT INFORMATION
  Report Type: 
  Country: None (occurrence: None)
  Receive Date: 20120706
  Receipt Date: 20111007
  Transmission Date: 20120928
  Serious: No
  Sender: FDA-Public Use
  Company Number: US-GLAXOSMITHKLINE-A0948242A

PATIENT
  Age: 37 Year
  Sex: Female

DRUGS (20)
  1. METFORMIN HCL [Concomitant]
  2. TEGRETOL [Concomitant]
  3. KLONOPIN [Concomitant]
  4. TRILEPTAL [Concomitant]
  5. ALBUTEROL [Concomitant]
  6. PROAIR HFA [Concomitant]
  7. LISINOPRIL [Concomitant]
  8. LOVASTATIN [Concomitant]
  9. GABAPENTIN [Concomitant]
  10. OMEPRAZOLE [Concomitant]
  11. GLYBURIDE [Concomitant]
  12. CITALOPRAM HYDROBROMIDE [Concomitant]
  13. LOVAZA [Concomitant]
  14. IPRATROPIUM BROMIDE [Concomitant]
  15. FLOVENT [Suspect]
     Indication: ASTHMA
     Dosage: 2PUFF AS REQUIRED
     Route: 055
     Dates: start: 19970101, end: 20111006
  16. HYDROCHLOROTHIAZIDE [Concomitant]
  17. LASIX [Concomitant]
  18. RANITIDINE [Concomitant]
  19. CRANBERRY TABLETS [Concomitant]
  20. SALINE NASAL SPRAY [Concomitant]

REACTIONS (6)
  - PHARYNGEAL OEDEMA [None]
  - HYPERTENSION [None]
  - HEART RATE INCREASED [None]
  - ERYTHEMA [None]
  - RASH [None]
  - ILL-DEFINED DISORDER [None]
